FAERS Safety Report 26201651 (Version 1)
Quarter: 2025Q4

REPORT INFORMATION
  Report Type: Spontaneous
  Country: EU (occurrence: EU)
  Receive Date: 20251226
  Receipt Date: 20251226
  Transmission Date: 20260117
  Serious: Yes (Life-Threatening)
  Sender: ROCHE
  Company Number: EU-ROCHE-10000469772

PATIENT
  Age: 88 Year
  Sex: Female

DRUGS (10)
  1. ALTEPLASE [Suspect]
     Active Substance: ALTEPLASE
     Indication: Cerebrovascular accident
     Route: 040
  2. ALTEPLASE [Suspect]
     Active Substance: ALTEPLASE
     Dosage: 5 MG/BOLUS, 45 MG/1HOUR
     Route: 042
  3. CARVEDILOL [Concomitant]
     Active Substance: CARVEDILOL
     Indication: Product used for unknown indication
     Dosage: DOSE: 2 X 0.5 DOSE UNIT: NO INFORMATION
     Route: 048
  4. ROSUVASTATIN CALCIUM [Concomitant]
     Active Substance: ROSUVASTATIN CALCIUM
     Indication: Product used for unknown indication
     Dosage: DOSE: 0.04 UNIT: NO INFORMATION
     Route: 048
  5. RAMIPRIL [Concomitant]
     Active Substance: RAMIPRIL
     Indication: Product used for unknown indication
     Dosage: DOSE: 5 UNIT: NO INFORMATION, 0-0-0.5
     Route: 048
  6. FUROSEMIDE [Concomitant]
     Active Substance: FUROSEMIDE
     Indication: Product used for unknown indication
     Dosage: DOSE: 20 UNIT
     Route: 042
  7. ENOXAPARIN SODIUM [Concomitant]
     Active Substance: ENOXAPARIN SODIUM
     Indication: Product used for unknown indication
     Dosage: DOSE: 0.4 UNIT: NO INFORMATION
     Route: 058
  8. DOPAMIN [Concomitant]
     Indication: Product used for unknown indication
     Route: 042
  9. ACARD [Concomitant]
     Indication: Product used for unknown indication
     Dosage: ACARD 75,
  10. CEFTRIAXONE SODIUM [Concomitant]
     Active Substance: CEFTRIAXONE SODIUM
     Indication: Product used for unknown indication
     Dosage: 2 X 1.0

REACTIONS (2)
  - Shock [Unknown]
  - Respiratory distress [Unknown]

NARRATIVE: CASE EVENT DATE: 20230601
